FAERS Safety Report 14402968 (Version 2)
Quarter: 2018Q2

REPORT INFORMATION
  Report Type: Report from Study
  Country: US (occurrence: US)
  Receive Date: 20180117
  Receipt Date: 20180508
  Transmission Date: 20180711
  Serious: No
  Sender: FDA-Public Use
  Company Number: PHEH2018US001958

PATIENT
  Age: 57 Year
  Sex: Female

DRUGS (1)
  1. COSENTYX [Suspect]
     Active Substance: SECUKINUMAB
     Indication: PSORIATIC ARTHROPATHY
     Dosage: 150 MG, QMO
     Route: 058
     Dates: start: 20170912

REACTIONS (5)
  - Nasopharyngitis [Unknown]
  - Drug ineffective [Unknown]
  - Head discomfort [Unknown]
  - Psoriasis [Unknown]
  - Inflammation [Unknown]

NARRATIVE: CASE EVENT DATE: 20180110
